FAERS Safety Report 9974249 (Version 1)
Quarter: 2014Q1

REPORT INFORMATION
  Report Type: Report from Study
  Country: US (occurrence: US)
  Receive Date: 20140306
  Receipt Date: 20140306
  Transmission Date: 20141002
  Serious: No
  Sender: FDA-Public Use
  Company Number: US-ABBVIE-13P-163-1156879-00

PATIENT
  Age: 53 Year
  Sex: Female

DRUGS (23)
  1. HUMIRA [Suspect]
     Indication: COLITIS ULCERATIVE
     Dates: start: 20130701
  2. ACETAMINOPHEN [Concomitant]
     Indication: PAIN
     Dosage: UP TO THREE TIMES PER DAY
  3. ALBUTEROL [Concomitant]
     Indication: ASTHMA
     Dosage: 2.5/3 ML
  4. ALBUTEROL [Concomitant]
     Indication: ASTHMA
     Dosage: AS NEEDED
  5. CALCIUM CARBONATE WITH VIT D 600MG+D [Concomitant]
     Indication: PRODUCT USED FOR UNKNOWN INDICATION
     Dosage: WHEN SHE CAN AFFORD IT, WAITING ON DUE INSURANCE
  6. CELEXA [Concomitant]
     Indication: ANXIETY
     Dosage: WAITING ON MED. DUE TO INSURANCE ISSUES
  7. CELEXA [Concomitant]
     Indication: DEPRESSION
  8. PLAVIX [Concomitant]
     Indication: CEREBROVASCULAR ACCIDENT
  9. DIAZEPAM [Concomitant]
     Indication: ANXIETY
  10. DICYCLOMINE [Concomitant]
     Indication: COLITIS ULCERATIVE
  11. CRESTOR [Concomitant]
     Indication: BLOOD CHOLESTEROL
  12. ZANAFLEX [Concomitant]
     Indication: PRODUCT USED FOR UNKNOWN INDICATION
  13. ULTRAM [Concomitant]
     Indication: PAIN
     Dosage: AS NEEDED
  14. PHENERGAN [Concomitant]
     Indication: NAUSEA
     Dosage: AS NEEDED
  15. NASONEX [Concomitant]
     Indication: HYPERSENSITIVITY
     Dosage: SPRAY
  16. REMERON [Concomitant]
     Indication: INSOMNIA
     Dosage: AT BEDTIME
  17. CANASA [Concomitant]
     Indication: COLITIS ULCERATIVE
  18. MERCAPTOPURINE [Concomitant]
     Indication: COLITIS ULCERATIVE
  19. NEXIUM [Concomitant]
     Indication: GASTROOESOPHAGEAL REFLUX DISEASE
     Dosage: IN THE AM
  20. FERROUS SULFATE [Concomitant]
     Indication: ANAEMIA
  21. HYDROCODONE [Concomitant]
     Indication: PAIN
     Dosage: AT BEDTIME AND SOMETIMES DURING THE DAY
  22. CLARITIN [Concomitant]
     Indication: HYPERSENSITIVITY
     Dosage: WAITING ON MED. DUE TO INSURANCE ISSUES
  23. FLAX SEED OIL [Concomitant]
     Indication: PRODUCT USED FOR UNKNOWN INDICATION

REACTIONS (2)
  - Injection site mass [Recovering/Resolving]
  - Injection site bruising [Recovering/Resolving]
